FAERS Safety Report 4862690-9 (Version None)
Quarter: 2005Q4

REPORT INFORMATION
  Report Type: 
  Country: None (occurrence: None)
  Receive Date: 20051221
  Receipt Date: 20051005
  Transmission Date: 20060501
  Serious: Yes (Hospitalization)
  Sender: FDA-Public Use
  Company Number: US-MERCK-0510USA05340

PATIENT
  Age: 77 Year
  Sex: Female
  Weight: 68 kg

DRUGS (7)
  1. VIOXX [Suspect]
     Indication: ARTHRITIS
     Route: 048
     Dates: start: 20001001, end: 20030729
  2. ATENOLOL [Concomitant]
     Route: 065
  3. DYAZIDE [Concomitant]
     Route: 065
  4. [THERAPY UNSPECIFIED] [Concomitant]
     Route: 065
  5. FEMHRT [Concomitant]
     Route: 065
  6. ENALAPRIL COMP [Concomitant]
     Route: 065
  7. SYNTHROID [Concomitant]
     Route: 065

REACTIONS (16)
  - ANGINA PECTORIS [None]
  - BACTERIA URINE [None]
  - BLOOD CREATININE INCREASED [None]
  - BLOOD FOLATE DECREASED [None]
  - BLOOD UREA INCREASED [None]
  - CEREBROVASCULAR ACCIDENT [None]
  - CONSTIPATION [None]
  - CORONARY ARTERY DISEASE [None]
  - CORONARY ARTERY STENOSIS [None]
  - DEPRESSION [None]
  - DIABETES MELLITUS [None]
  - HYPERCHOLESTEROLAEMIA [None]
  - HYPERTENSION [None]
  - HYPOTHYROIDISM [None]
  - OSTEOARTHRITIS [None]
  - RENAL FAILURE [None]
